FAERS Safety Report 5557377-3 (Version None)
Quarter: 2007Q4

REPORT INFORMATION
  Report Type: 
  Country: None (occurrence: None)
  Receive Date: 20071211
  Receipt Date: 20071127
  Transmission Date: 20080405
  Serious: Yes (Hospitalization)
  Sender: FDA-Public Use
  Company Number: 2007SP023737

PATIENT
  Age: 89 Year
  Sex: Female

DRUGS (14)
  1. BETAMETHASONE [Suspect]
     Indication: DRUG USE FOR UNKNOWN INDICATION
     Dosage: PO
     Route: 048
  2. MS CONTIN [Suspect]
     Indication: CANCER PAIN
     Dosage: 10MG;BID;PO
     Route: 048
     Dates: start: 20070605, end: 20070607
  3. HALCION [Concomitant]
  4. EURODIN [Concomitant]
  5. KENTAN [Concomitant]
  6. GEFANIL [Concomitant]
  7. AMARYL [Concomitant]
  8. TICLOPIDINE HCL [Concomitant]
  9. IMIPRAMINE HYDROCHLORIDE [Concomitant]
  10. NORVASC [Concomitant]
  11. NU-LOTAN [Concomitant]
  12. PRIMPERAN INJ [Concomitant]
  13. CETILO [Concomitant]
  14. SHAKUYAKUKANZOTO (TRADITIONAL CHINESE MEDICINE) [Concomitant]

REACTIONS (5)
  - HYPERHIDROSIS [None]
  - NAUSEA [None]
  - RESPIRATORY DEPRESSION [None]
  - SOMNOLENCE [None]
  - VOMITING [None]
